FAERS Safety Report 9580105 (Version 3)
Quarter: 2014Q1

REPORT INFORMATION
  Report Type: Spontaneous
  Country: US (occurrence: US)
  Receive Date: 20131002
  Receipt Date: 20140122
  Transmission Date: 20141002
  Serious: Yes (Disabling, Other)
  Sender: FDA-Public Use
  Company Number: US-009507513-1203USA02451

PATIENT
  Sex: Female

DRUGS (1)
  1. FOSAMAX [Suspect]
     Indication: PROPHYLAXIS
     Dosage: 70 MG, QW
     Route: 048
     Dates: end: 2009

REACTIONS (4)
  - Femur fracture [Unknown]
  - Paralysis [Not Recovered/Not Resolved]
  - Low turnover osteopathy [Unknown]
  - Blood cholesterol increased [Unknown]
